FAERS Safety Report 13559059 (Version 3)
Quarter: 2017Q2

REPORT INFORMATION
  Report Type: Spontaneous
  Country: DK (occurrence: DK)
  Receive Date: 20170518
  Receipt Date: 20170629
  Transmission Date: 20170830
  Serious: Yes (Hospitalization)
  Sender: FDA-Public Use
  Company Number: DK-ASTRAZENECA-2017SE52182

PATIENT
  Age: 18933 Day
  Sex: Male

DRUGS (3)
  1. MAGNYL [Suspect]
     Active Substance: ASPIRIN
     Indication: THROMBOSIS PROPHYLAXIS
     Route: 048
     Dates: start: 20141205
  2. BRILIQUE [Suspect]
     Active Substance: TICAGRELOR
     Indication: THROMBOSIS PROPHYLAXIS
     Dosage: 180MG,UNKNOWN
     Route: 048
     Dates: start: 20141205
  3. ARIXTRA [Suspect]
     Active Substance: FONDAPARINUX SODIUM
     Indication: THROMBOSIS PROPHYLAXIS
     Route: 048
     Dates: start: 20141205

REACTIONS (3)
  - Subdural haematoma [Recovered/Resolved with Sequelae]
  - Loss of consciousness [Recovered/Resolved]
  - Neurological symptom [Not Recovered/Not Resolved]

NARRATIVE: CASE EVENT DATE: 20141205
